FAERS Safety Report 4362142-9 (Version None)
Quarter: 2004Q2

REPORT INFORMATION
  Report Type: 
  Country: None (occurrence: None)
  Receive Date: 20040518
  Receipt Date: 20040503
  Transmission Date: 20050107
  Serious: Yes (Other)
  Sender: FDA-Public Use
  Company Number: S04-USA-01552-01

PATIENT
  Age: 31 Year
  Sex: Female
  Weight: 63.5036 kg

DRUGS (2)
  1. LEXAPRO [Suspect]
     Indication: DEPRESSION
     Dosage: 10 MG QD PO
     Route: 048
     Dates: start: 20040123, end: 20040301
  2. LAMICTAL [Concomitant]

REACTIONS (6)
  - ABNORMAL BEHAVIOUR [None]
  - AUTOMATISM [None]
  - CONDITION AGGRAVATED [None]
  - CONVULSION [None]
  - DEPRESSED LEVEL OF CONSCIOUSNESS [None]
  - DYSPHONIA [None]
